FAERS Safety Report 5817642-9 (Version None)
Quarter: 2008Q3

REPORT INFORMATION
  Report Type: 
  Country: None (occurrence: None)
  Receive Date: 20080722
  Receipt Date: 20080711
  Transmission Date: 20090109
  Serious: No
  Sender: FDA-Public Use
  Company Number: BR-ROCHE-530530

PATIENT
  Age: 31 Year
  Sex: Female
  Weight: 77 kg

DRUGS (2)
  1. ROACUTAN [Suspect]
     Indication: ACNE
     Route: 048
     Dates: start: 20070425, end: 20071004
  2. ORTHO EVRA [Concomitant]
     Indication: TRANSDERMAL CONTRACEPTION
     Route: 062
     Dates: start: 20070301

REACTIONS (2)
  - NO ADVERSE EVENT [None]
  - PREGNANCY [None]
